FAERS Safety Report 14798385 (Version 2)
Quarter: 2018Q2

REPORT INFORMATION
  Report Type: Spontaneous
  Country: US (occurrence: US)
  Receive Date: 20180424
  Receipt Date: 20180425
  Transmission Date: 20180711
  Serious: No
  Sender: FDA-Public Use
  Company Number: US-PFIZER INC-2018165779

PATIENT
  Age: 55 Year
  Sex: Female

DRUGS (1)
  1. LYRICA [Suspect]
     Active Substance: PREGABALIN
     Indication: SPINAL CORD INJURY
     Dosage: 500 MG, DAILY (150 MG IN THE MORNING, 150 MG IN THE AFTERNOON, AND 200 MG AT BEDTIME)

REACTIONS (2)
  - Rash [Not Recovered/Not Resolved]
  - Lip blister [Unknown]
